FAERS Safety Report 21403423 (Version 4)
Quarter: 2022Q4

REPORT INFORMATION
  Report Type: Spontaneous
  Country: US (occurrence: US)
  Receive Date: 20221003
  Receipt Date: 20221228
  Transmission Date: 20230112
  Serious: No
  Sender: FDA-Public Use
  Company Number: US-NOVARTISTESTPH-NVSC2022US221686

PATIENT
  Sex: Female

DRUGS (1)
  1. GLATIRAMER ACETATE [Suspect]
     Active Substance: GLATIRAMER ACETATE
     Indication: Product used for unknown indication
     Dosage: UNK, 12LISY
     Route: 065

REACTIONS (5)
  - Injection site pain [Unknown]
  - Device mechanical issue [Unknown]
  - Device issue [Unknown]
  - Product availability issue [Unknown]
  - Poor quality device used [Unknown]
